FAERS Safety Report 15483353 (Version 1)
Quarter: 2018Q4

REPORT INFORMATION
  Report Type: Spontaneous
  Country: US (occurrence: US)
  Receive Date: 20181010
  Receipt Date: 20181010
  Transmission Date: 20190205
  Serious: No
  Sender: FDA-Public Use
  Company Number: US-TARO-2018TAR00034

PATIENT
  Age: 78 Year
  Sex: Female
  Weight: 54.42 kg

DRUGS (26)
  1. SAMBUCA [Concomitant]
     Dosage: 1 TSP, 1X/DAY
  2. MUPIROCIN OINTMENT USP 2% [Suspect]
     Active Substance: MUPIROCIN
     Indication: SINUSITIS
     Dosage: ^ADD 1/5 OF TUBE TO 45 ML SALINE SPRAY, 2 SPRAYS, 2-3X/DAY
     Route: 045
     Dates: start: 20171114, end: 20180105
  3. IMODIUM [Concomitant]
     Active Substance: LOPERAMIDE HYDROCHLORIDE
     Dosage: UNK, 2X/DAY
  4. PROGESTERONE. [Concomitant]
     Active Substance: PROGESTERONE
     Dosage: UNK, 1X/DAY
  5. BUTYRIC-CAL-MAG [Concomitant]
     Dosage: UNK UNK, 1X/DAY
  6. ESTRIOL [Concomitant]
     Active Substance: ESTRIOL
     Dosage: UNK, 1X/WEEK
  7. LEVOTHYROXINE. [Concomitant]
     Active Substance: LEVOTHYROXINE
     Dosage: 50 ?G, 1X/DAY
  8. BIO-D-MULSION FORTE [Concomitant]
     Dosage: 2 DOSAGE UNITS (DROPS), 1X/DAY
  9. METHYL PROTECT [Concomitant]
     Dosage: UNK, EVERY 48 HOURS
  10. OSAPLEX [Concomitant]
     Dosage: UNK, 1X/DAY
  11. SMART SILVER [Concomitant]
     Dosage: UNK, 3X/DAY
     Route: 045
  12. VITALZYM COMPLETE [Concomitant]
     Dosage: 1 DOSAGE UNITS, 4X/DAY (WITH MEALS AND AT NIGHT)
  13. THER-BIOTIC COMPLETE [Concomitant]
     Dosage: 1/8 TEASPOON, 1X/DAY
  14. ALLEGRA [Concomitant]
     Active Substance: FEXOFENADINE HYDROCHLORIDE
     Dosage: UNK, 1X/DAY
  15. GLUCOBALANCE [Concomitant]
     Dosage: UNK, 3X/DAY (AT MEALS)
  16. COQ10 UBIQUINOL [Concomitant]
     Dosage: UNK, 2X/DAY
  17. MACULAR SUPPORT FORMULA [Concomitant]
     Dosage: UNK, 1X/DAY
  18. MUPIROCIN OINTMENT USP 2% [Suspect]
     Active Substance: MUPIROCIN
     Indication: NASAL INFLAMMATION
  19. ALBUTEROL. [Concomitant]
     Active Substance: ALBUTEROL
     Dosage: UNK, AS NEEDED
  20. HISTDAO [Concomitant]
     Dosage: UNK, 2X/DAY
  21. JARROW SACCHAROMYCES BOULARDII [Concomitant]
     Dosage: UNK, 1X/DAY
  22. SINGULAIR [Concomitant]
     Active Substance: MONTELUKAST SODIUM
     Dosage: UNK, 1X/DAY
  23. VITAMIN C [Concomitant]
     Active Substance: ASCORBIC ACID
  24. OVATION [Concomitant]
     Dosage: 100 MG, 2X/DAY
  25. ESTER-C [Concomitant]
     Active Substance: CALCIUM\VITAMINS
     Dosage: 2 DOSAGE UNITS, 2X/DAY
  26. BRAIN ENERGY [Concomitant]
     Dosage: UNK, 1X/DAY

REACTIONS (6)
  - Incorrect route of product administration [Recovered/Resolved]
  - Reaction to excipient [Recovering/Resolving]
  - Wrong technique in product usage process [Recovered/Resolved]
  - Drug effective for unapproved indication [Recovered/Resolved]
  - Rash [Recovering/Resolving]
  - Rash pruritic [Recovering/Resolving]

NARRATIVE: CASE EVENT DATE: 20171114
